FAERS Safety Report 24778955 (Version 1)
Quarter: 2024Q4

REPORT INFORMATION
  Report Type: Spontaneous
  Country: US (occurrence: US)
  Receive Date: 20241226
  Receipt Date: 20241226
  Transmission Date: 20250114
  Serious: No
  Sender: CHURCH & DWIGHT
  Company Number: US-ChurchDwight-2024-CDW-02260

PATIENT
  Sex: Female

DRUGS (1)
  1. ZICAM COLD REMEDY RAPIDMELTS [Suspect]
     Active Substance: HOMEOPATHICS\ZINC ACETATE\ZINC GLUCONATE
     Indication: Nasopharyngitis
     Dosage: EVERY 2-3 HOURS AS DIRECTED
     Route: 048
     Dates: start: 20241217, end: 20241219

REACTIONS (3)
  - Ageusia [Recovered/Resolved]
  - Dysgeusia [Recovered/Resolved]
  - Anosmia [Recovered/Resolved]

NARRATIVE: CASE EVENT DATE: 20241219
